FAERS Safety Report 9554952 (Version 1)
Quarter: 2013Q3

REPORT INFORMATION
  Report Type: Spontaneous
  Country: US (occurrence: US)
  Receive Date: 20130926
  Receipt Date: 20130926
  Transmission Date: 20140515
  Serious: Yes (Hospitalization, Other)
  Sender: FDA-Public Use
  Company Number: US-JNJFOC-20130912738

PATIENT
  Age: 14 Month
  Sex: Female

DRUGS (2)
  1. TYLENOL INFANT UNSPECIFIED [Suspect]
     Route: 065
  2. TYLENOL INFANT UNSPECIFIED [Suspect]
     Indication: PRODUCT USED FOR UNKNOWN INDICATION
     Route: 065

REACTIONS (1)
  - Accidental overdose [Recovered/Resolved]
